FAERS Safety Report 4294786-7 (Version None)
Quarter: 2004Q1

REPORT INFORMATION
  Report Type: 
  Country: None (occurrence: None)
  Receive Date: 20040216
  Receipt Date: 20000927
  Transmission Date: 20041129
  Serious: No
  Sender: FDA-Public Use
  Company Number: US-GLAXOSMITHKLINE-A0128839A

PATIENT
  Age: 46 Year
  Sex: Male

DRUGS (2)
  1. LAMICTAL [Suspect]
     Dosage: 200MG SEE DOSAGE TEXT
     Route: 048
     Dates: start: 20000301
  2. NO CONCURRENT MEDICATIONS [Concomitant]

REACTIONS (4)
  - ALOPECIA [None]
  - BURNING SENSATION [None]
  - DRY SKIN [None]
  - FEELING COLD [None]
